FAERS Safety Report 5720394-4 (Version None)
Quarter: 2008Q2

REPORT INFORMATION
  Report Type: 
  Country: None (occurrence: None)
  Receive Date: 20080428
  Receipt Date: 20080401
  Transmission Date: 20081010
  Serious: No
  Sender: FDA-Public Use
  Company Number: US-BOEHRINGER INGELHEIM GMBH, GERMANY-2008-BP-05174BP

PATIENT
  Sex: Female

DRUGS (6)
  1. MIRAPEX [Suspect]
     Indication: RESTLESS LEGS SYNDROME
     Route: 048
     Dates: start: 20080301
  2. PROZAC [Concomitant]
     Indication: ANXIETY
  3. PROZAC [Concomitant]
     Indication: DEPRESSION
  4. CLONIDINE HCL [Concomitant]
     Indication: RESTLESS LEGS SYNDROME
  5. METFORMIN HCL [Concomitant]
     Indication: DIABETES MELLITUS
  6. LEVOTHYROXINE SODIUM [Concomitant]
     Indication: THYROID DISORDER

REACTIONS (2)
  - DEPRESSION [None]
  - SUICIDAL IDEATION [None]
